FAERS Safety Report 5875852-9 (Version None)
Quarter: 2008Q3

REPORT INFORMATION
  Report Type: 
  Country: None (occurrence: None)
  Receive Date: 20080909
  Receipt Date: 20080828
  Transmission Date: 20090109
  Serious: Yes (Other)
  Sender: FDA-Public Use
  Company Number: US-PFIZER INC-2008073077

PATIENT
  Sex: Female
  Weight: 49.9 kg

DRUGS (7)
  1. DILANTIN [Suspect]
     Indication: EPILEPSY
  2. MOBIC [Concomitant]
  3. EFFEXOR [Concomitant]
  4. ACETYLSALICYLIC ACID SRT [Concomitant]
  5. ZANAFLEX [Concomitant]
  6. ELAVIL [Concomitant]
  7. LUNESTA [Concomitant]

REACTIONS (7)
  - ANTICONVULSANT DRUG LEVEL INCREASED [None]
  - CEREBROVASCULAR ACCIDENT [None]
  - CONVULSION [None]
  - FEELING DRUNK [None]
  - FIBROMYALGIA [None]
  - OSTEOPOROSIS [None]
  - TREMOR [None]
